FAERS Safety Report 11603849 (Version 1)
Quarter: 2015Q4

REPORT INFORMATION
  Report Type: Spontaneous
  Country: CO (occurrence: CO)
  Receive Date: 20151007
  Receipt Date: 20151007
  Transmission Date: 20160304
  Serious: Yes (Other)
  Sender: FDA-Public Use
  Company Number: CO-ROCHE-1641935

PATIENT
  Sex: Female

DRUGS (1)
  1. LUCENTIS [Suspect]
     Active Substance: RANIBIZUMAB
     Indication: VASCULAR OCCLUSION
     Route: 050

REACTIONS (4)
  - Sticky platelet syndrome [Unknown]
  - Blindness transient [Recovered/Resolved]
  - Vitreous opacities [Unknown]
  - Off label use [Unknown]
